FAERS Safety Report 15717173 (Version 1)
Quarter: 2018Q4

REPORT INFORMATION
  Report Type: Spontaneous
  Country: US (occurrence: US)
  Receive Date: 20181213
  Receipt Date: 20181213
  Transmission Date: 20190205
  Serious: No
  Sender: FDA-Public Use
  Company Number: US-APOTEX-2018AP007191

PATIENT
  Age: 25 Year
  Sex: Female

DRUGS (18)
  1. OLANZAPINE. [Suspect]
     Active Substance: OLANZAPINE
     Indication: PSYCHOTIC DISORDER
     Dosage: UNK
     Route: 065
  2. DIVALPROEX [Suspect]
     Active Substance: DIVALPROEX SODIUM
     Indication: PSYCHOTIC DISORDER
     Dosage: 2500 MG, PER DAY
     Route: 065
  3. LITHIUM. [Concomitant]
     Active Substance: LITHIUM
     Indication: AGITATION
  4. CLOZAPINE. [Concomitant]
     Active Substance: CLOZAPINE
     Indication: PSYCHOTIC DISORDER
     Dosage: 450 MG, PER DAY
     Route: 065
  5. LITHIUM. [Concomitant]
     Active Substance: LITHIUM
     Indication: PSYCHOTIC DISORDER
     Dosage: 1500 MG, PER DAY
     Route: 065
  6. DIPHENHYDRAMINE. [Concomitant]
     Active Substance: DIPHENHYDRAMINE
     Indication: PARANOIA
     Dosage: UNK
     Route: 065
  7. DIPHENHYDRAMINE. [Concomitant]
     Active Substance: DIPHENHYDRAMINE
     Indication: AGGRESSION
  8. LORAZEPAM. [Concomitant]
     Active Substance: LORAZEPAM
     Indication: AGGRESSION
  9. AMANTADINE. [Concomitant]
     Active Substance: AMANTADINE HYDROCHLORIDE
     Indication: NEUROLEPTIC MALIGNANT SYNDROME
     Dosage: UNK
     Route: 065
  10. DIVALPROEX [Suspect]
     Active Substance: DIVALPROEX SODIUM
     Indication: AGITATION
  11. LORAZEPAM. [Concomitant]
     Active Substance: LORAZEPAM
     Indication: PARANOIA
  12. CLOZAPINE. [Concomitant]
     Active Substance: CLOZAPINE
     Indication: AGITATION
  13. PALIPERIDONE PALMITATE [Concomitant]
     Active Substance: PALIPERIDONE PALMITATE
     Indication: PSYCHOTIC DISORDER
     Dosage: UNK
     Route: 065
  14. LORAZEPAM. [Concomitant]
     Active Substance: LORAZEPAM
     Indication: CATATONIA
     Dosage: UNK
     Route: 065
  15. CHLORPROMAZINE. [Concomitant]
     Active Substance: CHLORPROMAZINE
     Indication: AGITATION
     Dosage: UNK
     Route: 065
  16. HALOPERIDOL. [Concomitant]
     Active Substance: HALOPERIDOL
     Indication: PSYCHIATRIC SYMPTOM
     Dosage: UNK
     Route: 065
  17. HALOPERIDOL. [Concomitant]
     Active Substance: HALOPERIDOL
     Indication: AGGRESSION
  18. HALOPERIDOL. [Concomitant]
     Active Substance: HALOPERIDOL
     Indication: PARANOIA

REACTIONS (2)
  - Drug ineffective [Unknown]
  - Hyperammonaemia [Unknown]
